FAERS Safety Report 4440302-6 (Version None)
Quarter: 2004Q3

REPORT INFORMATION
  Report Type: 
  Country: None (occurrence: None)
  Receive Date: 20040831
  Receipt Date: 20040831
  Transmission Date: 20050211
  Serious: Yes (Life-Threatening, Hospitalization)
  Sender: FDA-Public Use
  Company Number: None

PATIENT
  Sex: Female

DRUGS (3)
  1. TEQUIN [Suspect]
     Indication: PNEUMONIA
     Dosage: 400 MG DAILY ORAL
     Route: 048
     Dates: start: 20040817, end: 20040829
  2. SULFONYLUREA GLIPIZIDE [Concomitant]
  3. HYDROCHLOROTHIAZIDE [Concomitant]

REACTIONS (4)
  - DIZZINESS [None]
  - LOSS OF CONSCIOUSNESS [None]
  - PALPITATIONS [None]
  - SYNCOPE [None]
